FAERS Safety Report 4724794-0 (Version None)
Quarter: 2005Q3

REPORT INFORMATION
  Report Type: 
  Country: None (occurrence: None)
  Receive Date: 20050726
  Receipt Date: 20050504
  Transmission Date: 20060218
  Serious: Yes (Other)
  Sender: FDA-Public Use
  Company Number: 2005GB00891

PATIENT
  Age: 826 Month
  Sex: Female
  Weight: 80 kg

DRUGS (2)
  1. ARIMIDEX [Suspect]
     Indication: BREAST CANCER
     Route: 048
     Dates: start: 20000101
  2. RADIOTHERAPY [Suspect]

REACTIONS (4)
  - BREAST DISCOMFORT [None]
  - BREAST NECROSIS [None]
  - MORPHOEA [None]
  - SKIN HYPERTROPHY [None]
